FAERS Safety Report 8825582 (Version 2)
Quarter: 2012Q4

REPORT INFORMATION
  Report Type: 
  Country: AU (occurrence: AU)
  Receive Date: 20121004
  Receipt Date: 20121102
  Transmission Date: 20130627
  Serious: Yes (Other)
  Sender: FDA-Public Use
  Company Number: PHHY2012AU086568

PATIENT
  Age: 84 Year
  Sex: Female

DRUGS (10)
  1. ACLASTA [Suspect]
     Dosage: 5 mg, UNK
     Route: 042
     Dates: start: 20090904
  2. ACLASTA [Suspect]
     Dosage: 5 mg, UNK
     Route: 042
     Dates: start: 20100930
  3. ACLASTA [Suspect]
     Dosage: 5 mg, UNK
     Route: 042
     Dates: start: 20110907
  4. ACLASTA [Suspect]
     Dosage: 5 mg, UNK
     Route: 042
     Dates: start: 20120906
  5. EXFORGE [Suspect]
     Dosage: 5/160, once daily
  6. ASPIRIN [Concomitant]
     Indication: MYOCARDIAL ISCHAEMIA
     Dosage: 1 DF, daily
  7. ATENOLOL [Concomitant]
     Indication: HYPERTENSION
     Dosage: 1 DF, daily
  8. CRESTOR [Concomitant]
     Indication: BLOOD CHOLESTEROL INCREASED
     Dosage: 1 DF, nightly
  9. OROXINE [Concomitant]
     Indication: HYPOTHYROIDISM
     Dosage: UNK mg, alternating daily
  10. ROCALTROL [Concomitant]
     Indication: OSTEOPOROSIS
     Dosage: 1 DF, daily

REACTIONS (6)
  - Influenza like illness [Unknown]
  - Tremor [Recovered/Resolved]
  - Gait disturbance [Recovered/Resolved]
  - Gingival pain [Recovering/Resolving]
  - Loose tooth [Unknown]
  - Toothache [Recovering/Resolving]
